FAERS Safety Report 7707926-1 (Version None)
Quarter: 2011Q3

REPORT INFORMATION
  Report Type: 
  Country: None (occurrence: None)
  Receive Date: 20110824
  Receipt Date: 20110815
  Transmission Date: 20111222
  Serious: Yes (Other)
  Sender: FDA-Public Use
  Company Number: US-ASTRAZENECA-2011SE21164

PATIENT
  Age: 44 Year
  Sex: Male
  Weight: 87.1 kg

DRUGS (2)
  1. SEROQUEL [Suspect]
     Route: 048
  2. SEROQUEL [Suspect]
     Route: 048

REACTIONS (6)
  - RAPID EYE MOVEMENTS SLEEP ABNORMAL [None]
  - NIGHTMARE [None]
  - STRESS [None]
  - DRUG DOSE OMISSION [None]
  - SUICIDAL IDEATION [None]
  - INSOMNIA [None]
